FAERS Safety Report 8115670 (Version 6)
Quarter: 2013Q2

REPORT INFORMATION
  Report Type: Report from Study
  Country: DE (occurrence: DE)
  Receive Date: 20110831
  Receipt Date: 20130617
  Transmission Date: 20140414
  Serious: Yes (Hospitalization, Other)
  Sender: FDA-Public Use
  Company Number: DE-ABBOTT-11P-062-0849516-00

PATIENT
  Age: 22 Year
  Sex: Male

DRUGS (4)
  1. HUMIRA [Suspect]
     Indication: CROHN^S DISEASE
     Dosage: 40MG EOW , WEDNESDAYS
     Dates: start: 201004, end: 201008
  2. HUMIRA [Suspect]
     Route: 058
     Dates: start: 201109, end: 201204
  3. HUMIRA [Suspect]
     Dates: start: 20120315, end: 20130315
  4. NOVALGIN [Concomitant]
     Indication: PRODUCT USED FOR UNKNOWN INDICATION
     Dosage: 20-40 DROPS PER DAY IF REQUIRED

REACTIONS (15)
  - Inguinal hernia [Unknown]
  - Ileus paralytic [Unknown]
  - Gastric atony [Unknown]
  - Pyrexia [Unknown]
  - Enterocutaneous fistula [Unknown]
  - Adhesiolysis [Unknown]
  - Ileostomy [Unknown]
  - Ileostomy [Unknown]
  - Omentectomy [Unknown]
  - Abscess [Unknown]
  - Abscess [Recovered/Resolved]
  - Erythema [Unknown]
  - Abdominal abscess [Recovering/Resolving]
  - Diarrhoea [Unknown]
  - Impaired healing [Not Recovered/Not Resolved]
